FAERS Safety Report 7123781-5 (Version None)
Quarter: 2010Q4

REPORT INFORMATION
  Report Type: 
  Country: None (occurrence: None)
  Receive Date: 20101125
  Receipt Date: 20101115
  Transmission Date: 20110411
  Serious: Yes (Hospitalization)
  Sender: FDA-Public Use
  Company Number: PHHY2010DE57763

PATIENT
  Sex: Female

DRUGS (15)
  1. CGS 20267 T30748+ [Suspect]
     Indication: BREAST CANCER
     Dosage: 2.5 MG DAILY
     Dates: start: 20090814
  2. LEVOTHYROXINE SODIUM [Concomitant]
     Dosage: UNK
     Dates: start: 19970101
  3. TORASEMIDE [Concomitant]
     Dosage: 5 MG, UNK
  4. PANTOPRAZOLE [Concomitant]
     Dosage: UNK
     Dates: start: 20070101
  5. ARCOXIA [Concomitant]
     Dosage: UNK
     Dates: start: 20090701
  6. MIFLONIDE [Concomitant]
     Dosage: 1-0-0
     Dates: start: 20070101
  7. FORMOTEROL FUMARATE [Concomitant]
     Dosage: 1-0-0
     Dates: start: 20070101
  8. TPN [Concomitant]
     Dosage: UNK
     Route: 048
     Dates: start: 20100624, end: 20100804
  9. HEPARIN [Concomitant]
     Dosage: 5000 IU, UNK
     Dates: start: 20100624, end: 20100722
  10. VIGANTOLETTEN [Concomitant]
     Dosage: 1000 IU, UNK
     Dates: start: 20100624, end: 20100722
  11. CALCIUM [Concomitant]
     Dosage: 500 MG, UNK
     Dates: start: 20100624, end: 20100722
  12. RAMIPRIL [Concomitant]
     Dosage: 2.5 MG, UNK
     Route: 048
     Dates: start: 20100624, end: 20100722
  13. TEPILTA [Concomitant]
     Dosage: UNK
     Dates: start: 20100624, end: 20100722
  14. METOCLOPRAMIDE [Concomitant]
     Dosage: UNK
     Route: 048
     Dates: start: 20100624, end: 20100722
  15. VOMEX A [Concomitant]
     Dosage: UNK
     Route: 048
     Dates: start: 20100624, end: 20100722

REACTIONS (14)
  - ABSCESS [None]
  - ABSCESS DRAINAGE [None]
  - ABSCESS LIMB [None]
  - COLECTOMY [None]
  - COLITIS ULCERATIVE [None]
  - CROHN'S DISEASE [None]
  - DEEP VEIN THROMBOSIS [None]
  - DIARRHOEA [None]
  - FISTULA [None]
  - HAEMATOCHEZIA [None]
  - HOT FLUSH [None]
  - OEDEMA PERIPHERAL [None]
  - PAIN IN EXTREMITY [None]
  - THROMBOPHLEBITIS [None]
